FAERS Safety Report 7908043-8 (Version None)
Quarter: 2011Q4

REPORT INFORMATION
  Report Type: 
  Country: None (occurrence: None)
  Receive Date: 20111110
  Receipt Date: 20111107
  Transmission Date: 20120403
  Serious: Yes (Hospitalization)
  Sender: FDA-Public Use
  Company Number: DE-BRISTOL-MYERS SQUIBB COMPANY-16218372

PATIENT
  Age: 42 Year
  Sex: Male
  Weight: 74 kg

DRUGS (14)
  1. PANTOPRAZOLE [Concomitant]
     Dates: start: 20110927
  2. MANNITOL [Concomitant]
     Indication: PROPHYLAXIS
     Dates: start: 20111010, end: 20111010
  3. DELTAJONIN [Concomitant]
     Dates: start: 20111010, end: 20111014
  4. CISPLATIN [Suspect]
     Indication: NON-SMALL CELL LUNG CANCER STAGE III
     Dosage: LAST DOSE:10OCT11 INTERRUPTED ON 17OCT11 DAY 1 AND 8 CYCLE1 AND DAY 1 CYCLE 2
     Route: 065
     Dates: start: 20110912
  5. APREPITANT [Concomitant]
     Dates: start: 20111010, end: 20111012
  6. POLYETHYLENE GLYCOL [Concomitant]
     Dates: start: 20111007, end: 20111021
  7. FONDAPARINUX SODIUM [Concomitant]
     Indication: ANTICOAGULANT THERAPY
     Dates: start: 20110926, end: 20111018
  8. ETOPOSIDE [Suspect]
     Indication: NON-SMALL CELL LUNG CANCER STAGE III
     Dosage: LAST DOSE:14OCT11 DAY 1-5,CYCLE 1 AND 2
     Route: 065
     Dates: start: 20110912
  9. AMPHOTERICIN B [Concomitant]
     Dates: start: 20110927
  10. GRANISETRON [Concomitant]
     Dates: start: 20111010, end: 20111013
  11. LACTULOSE [Concomitant]
     Indication: CONSTIPATION
     Dates: start: 20111015, end: 20111015
  12. DEXAMETHASONE [Concomitant]
     Dates: start: 20111010, end: 20111014
  13. SODIUM PICOSULFATE [Concomitant]
     Indication: CONSTIPATION
     Dates: start: 20111024, end: 20111024
  14. INSULIN HUMAN [Concomitant]
     Indication: HYPERGLYCAEMIA
     Dates: start: 20111014, end: 20111014

REACTIONS (5)
  - OESOPHAGITIS [None]
  - STEVENS-JOHNSON SYNDROME [None]
  - PLATELET COUNT DECREASED [None]
  - WHITE BLOOD CELL COUNT DECREASED [None]
  - NEUTROPHIL COUNT DECREASED [None]
